FAERS Safety Report 11737029 (Version 1)
Quarter: 2015Q4

REPORT INFORMATION
  Report Type: Spontaneous
  Country: US (occurrence: US)
  Receive Date: 20151110
  Receipt Date: 20151110
  Transmission Date: 20160304
  Serious: No
  Sender: FDA-Public Use
  Company Number: US-ELI_LILLY_AND_COMPANY-US201204004127

PATIENT
  Sex: Female

DRUGS (1)
  1. FORTEO [Suspect]
     Active Substance: TERIPARATIDE
     Indication: OSTEOPOROSIS
     Dosage: 20 UG, QD
     Route: 065
     Dates: start: 201201

REACTIONS (9)
  - Fall [Unknown]
  - Dizziness [Unknown]
  - Bone disorder [Unknown]
  - Back pain [Not Recovered/Not Resolved]
  - Pain [Unknown]
  - Fungal infection [Unknown]
  - Discomfort [Unknown]
  - Musculoskeletal chest pain [Unknown]
  - Body height decreased [Unknown]

NARRATIVE: CASE EVENT DATE: 2012
